FAERS Safety Report 6905517-3 (Version None)
Quarter: 2010Q3

REPORT INFORMATION
  Report Type: 
  Country: None (occurrence: None)
  Receive Date: 20100804
  Receipt Date: 20100723
  Transmission Date: 20110219
  Serious: Yes (Death, Hospitalization)
  Sender: FDA-Public Use
  Company Number: CZ-PFIZER INC-2010085088

PATIENT
  Age: 68 Year
  Sex: Female

DRUGS (1)
  1. SUTENT [Suspect]
     Indication: RENAL CELL CARCINOMA
     Dosage: 50 MG, FOR THREE WEEKS

REACTIONS (5)
  - CARDIAC FAILURE [None]
  - HAEMORRHAGIC DIATHESIS [None]
  - PANCYTOPENIA [None]
  - SHOCK [None]
  - THROMBOCYTOPENIA [None]
